FAERS Safety Report 15373458 (Version 1)
Quarter: 2018Q3

REPORT INFORMATION
  Report Type: Spontaneous
  Country: US (occurrence: US)
  Receive Date: 20180912
  Receipt Date: 20180912
  Transmission Date: 20181010
  Serious: Yes (Hospitalization)
  Sender: FDA-Public Use
  Company Number: US-FRESENIUS MEDICAL CARE RENAL THERAPIES GROUP-FMC-1809-001645

PATIENT
  Age: 71 Year
  Sex: Female

DRUGS (6)
  1. ROCALTROL [Concomitant]
     Active Substance: CALCITRIOL
  2. ATORVASTATIN [Concomitant]
     Active Substance: ATORVASTATIN
  3. COREG [Concomitant]
     Active Substance: CARVEDILOL
  4. DELFLEX [Suspect]
     Active Substance: CALCIUM CHLORIDE\DEXTROSE\MAGNESIUM CHLORIDE\SODIUM CHLORIDE\SODIUM LACTATE
     Indication: END STAGE RENAL DISEASE
     Route: 033
  5. NOVOLOG [Concomitant]
     Active Substance: INSULIN ASPART
  6. ELIQUIS [Concomitant]
     Active Substance: APIXABAN

REACTIONS (1)
  - Pneumonia [Recovered/Resolved]

NARRATIVE: CASE EVENT DATE: 20180821
